FAERS Safety Report 16576412 (Version 1)
Quarter: 2019Q3

REPORT INFORMATION
  Report Type: Spontaneous
  Country: US (occurrence: US)
  Receive Date: 20190715
  Receipt Date: 20190715
  Transmission Date: 20191004
  Serious: Yes (Hospitalization, Disabling)
  Sender: FDA-Public Use
  Company Number: None

PATIENT
  Age: 52 Year
  Sex: Male
  Weight: 113.4 kg

DRUGS (1)
  1. MULTIHANCE [Suspect]
     Active Substance: GADOBENATE DIMEGLUMINE

REACTIONS (16)
  - Renal pain [None]
  - Formication [None]
  - Vision blurred [None]
  - Rash [None]
  - Pollakiuria [None]
  - Burning sensation [None]
  - Pruritus generalised [None]
  - Feeling abnormal [None]
  - Visual impairment [None]
  - Sleep deficit [None]
  - Self-injurious ideation [None]
  - Paraesthesia [None]
  - Rash macular [None]
  - Oesophageal pain [None]
  - Dyspnoea [None]
  - Back pain [None]

NARRATIVE: CASE EVENT DATE: 20051101
